FAERS Safety Report 8476314-5 (Version None)
Quarter: 2012Q2

REPORT INFORMATION
  Report Type: 
  Country: None (occurrence: None)
  Receive Date: 20120628
  Receipt Date: 20120624
  Transmission Date: 20120825
  Serious: Yes (Hospitalization, Other)
  Sender: FDA-Public Use
  Company Number: SE-BRISTOL-MYERS SQUIBB COMPANY-15532799

PATIENT
  Age: 67 Year
  Sex: Male

DRUGS (8)
  1. ASPIRIN [Concomitant]
     Dosage: AGAIN THERAPY STARTED ON 20JAN11
     Dates: start: 20101008
  2. ANGIOTENSIN [Concomitant]
     Dosage: ANGIOTENSIN RECEPTOR BLOCKER AGAIN THERAPY STARTED ON 20JAN11
     Dates: start: 20101008
  3. EZETIMIBE [Concomitant]
     Dosage: AGAIN THERAPY STARTED ON 20JAN11
     Dates: start: 20101008
  4. BLINDED: SAXAGLIPTIN [Suspect]
     Indication: TYPE 2 DIABETES MELLITUS
     Dates: start: 20101009
  5. PLACEBO [Suspect]
     Indication: TYPE 2 DIABETES MELLITUS
     Dates: start: 20101009
  6. METFORMIN HCL [Suspect]
     Indication: TYPE 2 DIABETES MELLITUS
     Dosage: 1500MG: 02MAR2012 1000MG: 22MAR2012
     Dates: start: 20110422, end: 20120228
  7. CRESTOR [Suspect]
  8. CALCIUM ANTAGONIST [Concomitant]
     Dosage: AGAIN THERAPY STARTED ON 20JAN11
     Dates: start: 20101008

REACTIONS (4)
  - INFLUENZA [None]
  - PANCREATITIS [None]
  - BILIARY POLYP [None]
  - ABDOMINAL PAIN [None]
